FAERS Safety Report 9812778 (Version 1)
Quarter: 2014Q1

REPORT INFORMATION
  Report Type: Spontaneous
  Country: US (occurrence: None)
  Receive Date: 20140108
  Receipt Date: 20140108
  Transmission Date: 20141002
  Serious: Yes (Other)
  Sender: FDA-Public Use
  Company Number: 201401008

PATIENT
  Age: 55 Year
  Sex: Male

DRUGS (1)
  1. TESTOPEL [Suspect]
     Indication: PRODUCT USED FOR UNKNOWN INDICATION
     Dosage: PELLETS SUBCUTANEOUS
     Route: 058
     Dates: start: 20131216

REACTIONS (1)
  - Implant site cellulitis [None]
